FAERS Safety Report 6450806-2 (Version None)
Quarter: 2009Q4

REPORT INFORMATION
  Report Type: 
  Country: None (occurrence: None)
  Receive Date: 20091120
  Receipt Date: 20091120
  Transmission Date: 20100525
  Serious: Yes (Life-Threatening)
  Sender: FDA-Public Use
  Company Number: None

PATIENT
  Age: 88 Year
  Sex: Female

DRUGS (1)
  1. DICLOFENAC SODIUM [Suspect]
     Indication: ANTIINFLAMMATORY THERAPY
     Dosage: 1 DROPS UD EYE
     Route: 047
     Dates: start: 20081013, end: 20081015

REACTIONS (1)
  - ANAPHYLACTIC REACTION [None]
